FAERS Safety Report 8911657 (Version 1)
Quarter: 2012Q4

REPORT INFORMATION
  Report Type: 
  Country: US (occurrence: US)
  Receive Date: 20121116
  Receipt Date: 20121116
  Transmission Date: 20130627
  Serious: Yes (Other)
  Sender: FDA-Public Use
  Company Number: 2012SP003128

PATIENT
  Sex: Female

DRUGS (1)
  1. XOPENEX HFA [Suspect]
     Indication: PRODUCT USED FOR UNKNOWN INDICATION
     Route: 055

REACTIONS (3)
  - Cardiac disorder [Unknown]
  - Wrist fracture [Unknown]
  - Fall [Unknown]
